FAERS Safety Report 24439584 (Version 1)
Quarter: 2024Q4

REPORT INFORMATION
  Report Type: Spontaneous
  Country: US (occurrence: None)
  Receive Date: 20241015
  Receipt Date: 20241015
  Transmission Date: 20250115
  Serious: Yes (Disabling)
  Sender: Public
  Company Number: None

PATIENT
  Age: 29 Year
  Sex: Male
  Weight: 67.5 kg

DRUGS (6)
  1. LEVAQUIN [Suspect]
     Active Substance: LEVOFLOXACIN
     Indication: Urinary tract infection
     Dosage: FREQUENCY : TWICE A DAY;?
     Route: 048
     Dates: start: 20221001, end: 20221010
  2. CELEBREX [Concomitant]
     Active Substance: CELECOXIB
  3. MAGNESIUM [Concomitant]
     Active Substance: MAGNESIUM
  4. COLLAGEN [Concomitant]
     Active Substance: COLLAGEN
  5. PROTEIN POWDER [Concomitant]
  6. MELATONIN [Concomitant]
     Active Substance: MELATONIN

REACTIONS (12)
  - Tendon rupture [None]
  - Myopathy [None]
  - Inflammation [None]
  - Pain [None]
  - Muscle atrophy [None]
  - Electric shock sensation [None]
  - Gastrointestinal disorder [None]
  - Gait disturbance [None]
  - Loss of personal independence in daily activities [None]
  - Muscle spasms [None]
  - Depression [None]
  - Product complaint [None]

NARRATIVE: CASE EVENT DATE: 20221015
